FAERS Safety Report 5028567-3 (Version None)
Quarter: 2006Q2

REPORT INFORMATION
  Report Type: 
  Country: None (occurrence: None)
  Receive Date: 20060615
  Receipt Date: 20060615
  Transmission Date: 20061013
  Serious: Yes (Other)
  Sender: FDA-Public Use
  Company Number: None

PATIENT
  Age: 72 Year
  Sex: Male

DRUGS (1)
  1. GLIPIZIDE XL 5 MG GREENSTONE [Suspect]
     Indication: BLOOD GLUCOSE
     Dosage: 5 MG QD PO
     Route: 048
     Dates: start: 20060526, end: 20060601

REACTIONS (2)
  - BLOOD GLUCOSE FLUCTUATION [None]
  - PHARMACEUTICAL PRODUCT COMPLAINT [None]
